FAERS Safety Report 24043855 (Version 1)
Quarter: 2024Q3

REPORT INFORMATION
  Report Type: Spontaneous
  Country: GB (occurrence: GB)
  Receive Date: 20240703
  Receipt Date: 20240703
  Transmission Date: 20241017
  Serious: No
  Sender: MENARINI
  Company Number: None

PATIENT
  Sex: Female

DRUGS (3)
  1. RANOLAZINE [Suspect]
     Active Substance: RANOLAZINE
     Route: 048
  2. ISOSORBIDE MONONITRATE [Suspect]
     Active Substance: ISOSORBIDE MONONITRATE
  3. RAMIPRIL [Suspect]
     Active Substance: RAMIPRIL

REACTIONS (1)
  - Abdominal pain upper [Recovered/Resolved]
